FAERS Safety Report 8695139 (Version 2)
Quarter: 2013Q4

REPORT INFORMATION
  Report Type: Spontaneous
  Country: US (occurrence: US)
  Receive Date: 20120731
  Receipt Date: 20131101
  Transmission Date: 20140711
  Serious: Yes (Hospitalization, Other)
  Sender: FDA-Public Use
  Company Number: US-009507513-1207USA009774

PATIENT
  Age: 43 Year
  Sex: Male

DRUGS (6)
  1. ZOCOR [Suspect]
     Dosage: 40 MG, QD
     Route: 048
  2. ACETAMINOPHEN [Concomitant]
  3. COD LIVER OIL [Concomitant]
  4. ZINC [Concomitant]
  5. VITAMINS (UNSPECIFIED) [Concomitant]
  6. ASCORBIC ACID [Concomitant]

REACTIONS (2)
  - Myositis [Unknown]
  - Hepatitis [Unknown]
